FAERS Safety Report 25234631 (Version 1)
Quarter: 2025Q2

REPORT INFORMATION
  Report Type: Spontaneous
  Country: CN (occurrence: CN)
  Receive Date: 20250424
  Receipt Date: 20250424
  Transmission Date: 20250717
  Serious: Yes (Life-Threatening, Hospitalization, Other)
  Sender: ACCORD
  Company Number: CN-Accord-480410

PATIENT
  Age: 26 Year
  Sex: Male

DRUGS (4)
  1. QUETIAPINE [Suspect]
     Active Substance: QUETIAPINE
     Route: 048
     Dates: start: 20230329
  2. VORTIOXETINE [Concomitant]
     Active Substance: VORTIOXETINE
  3. VENLAFAXINE HYDROCHLORIDE [Concomitant]
     Active Substance: VENLAFAXINE HYDROCHLORIDE
     Dosage: TWO TABLETS, ONCE DAILY (SUSTAINED-RELEASE CAPSULES)
  4. ESTAZOLAM [Concomitant]
     Active Substance: ESTAZOLAM
     Dosage: ONE TABLET, BEFORE BEDTIME (STRENGTH: 1 MG)

REACTIONS (10)
  - Neuropathy peripheral [Recovered/Resolved]
  - Coma [Recovered/Resolved]
  - Rhabdomyolysis [Recovered/Resolved]
  - Intentional overdose [Unknown]
  - Tachycardia [Recovered/Resolved]
  - Long QT syndrome [Recovered/Resolved]
  - Renal tubular necrosis [Recovered/Resolved]
  - Tubulointerstitial nephritis [Recovered/Resolved]
  - Renal tubular disorder [Recovered/Resolved]
  - Toxicity to various agents [Unknown]

NARRATIVE: CASE EVENT DATE: 20230329
